FAERS Safety Report 9227974 (Version 1)
Quarter: 2013Q2

REPORT INFORMATION
  Report Type: Spontaneous
  Country: US (occurrence: US)
  Receive Date: 20130412
  Receipt Date: 20130412
  Transmission Date: 20140414
  Serious: No
  Sender: FDA-Public Use
  Company Number: US-B.I. PHARMACEUTICALS,INC./RIDGEFIELD-2013-BI-09539BP

PATIENT
  Sex: Male

DRUGS (4)
  1. CATAPRES TTS [Suspect]
  2. PROTONIX [Concomitant]
     Indication: PEPTIC ULCER
  3. LOTENSIN HCT [Concomitant]
  4. TRANDATE [Concomitant]

REACTIONS (1)
  - Hypersensitivity [Unknown]
